FAERS Safety Report 5188607-8 (Version None)
Quarter: 2006Q4

REPORT INFORMATION
  Report Type: 
  Country: None (occurrence: None)
  Receive Date: 20061214
  Receipt Date: 20061201
  Transmission Date: 20070319
  Serious: Yes (Hospitalization)
  Sender: FDA-Public Use
  Company Number: 2006149525

PATIENT
  Sex: Female

DRUGS (1)
  1. CHANTIX [Suspect]
     Indication: SMOKING CESSATION THERAPY
     Dosage: INTERVAL: EVERY DAY, ORAL
     Route: 048

REACTIONS (3)
  - COLITIS ISCHAEMIC [None]
  - GASTROINTESTINAL NECROSIS [None]
  - NAUSEA [None]
